FAERS Safety Report 16122429 (Version 1)
Quarter: 2019Q2

REPORT INFORMATION
  Report Type: Spontaneous
  Country: US (occurrence: US)
  Receive Date: 20190326
  Receipt Date: 20190326
  Transmission Date: 20190711
  Serious: Yes (Death, Hospitalization, Other)
  Sender: FDA-Public Use
  Company Number: None

PATIENT
  Age: 85 Year
  Sex: Female

DRUGS (2)
  1. PEMBROLIZUMAB. [Suspect]
     Active Substance: PEMBROLIZUMAB
     Indication: BREAST CANCER
     Dosage: ?          OTHER FREQUENCY:Q3W;?
     Route: 042
     Dates: start: 20190207, end: 20190228
  2. TAXOL [Suspect]
     Active Substance: PACLITAXEL
     Indication: BREAST CANCER
     Dosage: ?          OTHER FREQUENCY:QW;?
     Route: 042
     Dates: start: 20190207, end: 20190307

REACTIONS (13)
  - Pulmonary mass [None]
  - Pleural effusion [None]
  - Lung neoplasm malignant [None]
  - Apnoea [None]
  - Hypotension [None]
  - Pulse absent [None]
  - Neoplasm progression [None]
  - Breath sounds absent [None]
  - Diarrhoea [None]
  - Bandaemia [None]
  - Unresponsive to stimuli [None]
  - Tachycardia [None]
  - Sepsis [None]

NARRATIVE: CASE EVENT DATE: 20190313
